FAERS Safety Report 12235489 (Version 2)
Quarter: 2016Q2

REPORT INFORMATION
  Report Type: Spontaneous
  Country: US (occurrence: US)
  Receive Date: 20160404
  Receipt Date: 20160613
  Transmission Date: 20160815
  Serious: Yes (Other)
  Sender: FDA-Public Use
  Company Number: PHEH2016US007869

PATIENT
  Age: 15 Year
  Sex: Male
  Weight: 72.27 kg

DRUGS (2)
  1. ASPIRIN. [Concomitant]
     Active Substance: ASPIRIN
     Indication: KAWASAKI^S DISEASE
     Dosage: UNK UNK, QD
     Route: 048
     Dates: start: 20141102
  2. FOCALIN XR [Suspect]
     Active Substance: DEXMETHYLPHENIDATE HYDROCHLORIDE
     Indication: ATTENTION DEFICIT/HYPERACTIVITY DISORDER
     Dosage: UNK UNK, QD
     Route: 048
     Dates: start: 20160202, end: 20160404

REACTIONS (5)
  - Blood creatine phosphokinase increased [Recovered/Resolved]
  - Haematuria [Recovered/Resolved]
  - Muscle spasms [Unknown]
  - Chromaturia [Recovered/Resolved]
  - Rhabdomyolysis [Recovered/Resolved]

NARRATIVE: CASE EVENT DATE: 20160210
